FAERS Safety Report 12458840 (Version 2)
Quarter: 2016Q2

REPORT INFORMATION
  Report Type: Spontaneous
  Country: UA (occurrence: UA)
  Receive Date: 20160613
  Receipt Date: 20160627
  Transmission Date: 20160815
  Serious: Yes (Life-Threatening, Hospitalization)
  Sender: FDA-Public Use
  Company Number: UA-ROCHE-1771898

PATIENT
  Age: 18 Year
  Sex: Female

DRUGS (1)
  1. ACTEMRA [Suspect]
     Active Substance: TOCILIZUMAB
     Indication: JUVENILE IDIOPATHIC ARTHRITIS
     Dosage: 3 VIALS X 200 MG
     Route: 042

REACTIONS (3)
  - Ill-defined disorder [Unknown]
  - Sepsis [Recovering/Resolving]
  - Ill-defined disorder [Not Recovered/Not Resolved]
